FAERS Safety Report 5305760-3 (Version None)
Quarter: 2007Q2

REPORT INFORMATION
  Report Type: 
  Country: None (occurrence: None)
  Receive Date: 20070416
  Receipt Date: 20070329
  Transmission Date: 20071010
  Serious: Yes (Hospitalization)
  Sender: FDA-Public Use
  Company Number: 8023053

PATIENT
  Age: 72 Year
  Sex: Male

DRUGS (14)
  1. LEVETIRACETAM [Suspect]
     Dosage: IV
     Route: 042
     Dates: start: 20070213, end: 20070215
  2. CLOBAZAM [Suspect]
     Dosage: 5 MG 1/D PO
     Route: 048
     Dates: start: 20070213, end: 20070223
  3. PHENYTOIN [Suspect]
     Indication: CONVULSION
     Dosage: 200 MG 3/D IV
     Route: 042
     Dates: start: 20070214, end: 20070226
  4. PHENYTOIN [Suspect]
     Indication: CONVULSION
     Dosage: 180 MG 3/D PO
     Route: 048
     Dates: start: 20070227
  5. TOPAMAX [Suspect]
     Indication: CONVULSION
     Dosage: PO
     Route: 048
  6. AMLODIPINE [Concomitant]
  7. ASPIRIN [Concomitant]
  8. DEXAMETHASONE 0.5MG TAB [Concomitant]
  9. DIGOXIN [Concomitant]
  10. LANSOPRAZOLE [Concomitant]
  11. METOPROLOL SUCCINATE [Concomitant]
  12. PARACETAMOL [Concomitant]
  13. THIAMINE [Concomitant]
  14. VITAMIN B STRONG [Concomitant]

REACTIONS (1)
  - HEPATITIS [None]
